FAERS Safety Report 5405193-5 (Version None)
Quarter: 2007Q3

REPORT INFORMATION
  Report Type: 
  Country: None (occurrence: None)
  Receive Date: 20070803
  Receipt Date: 20070720
  Transmission Date: 20080115
  Serious: Yes (Other)
  Sender: FDA-Public Use
  Company Number: US-ELI_LILLY_AND_COMPANY-US200704006008

PATIENT
  Age: 37 Year
  Sex: Female
  Weight: 166 kg

DRUGS (3)
  1. ACTOS [Concomitant]
     Indication: TYPE 2 DIABETES MELLITUS
     Dosage: 45 MG, DAILY (1/D)
     Route: 048
     Dates: start: 20070316
  2. THYROID TAB [Concomitant]
     Indication: HYPOTHYROIDISM
     Dosage: 1 G, DAILY (1/D)
     Route: 048
     Dates: start: 20070201
  3. BYETTA [Suspect]
     Indication: TYPE 2 DIABETES MELLITUS
     Dosage: 5 UG, 2/D
     Route: 058
     Dates: start: 20070301

REACTIONS (4)
  - DYSPNOEA [None]
  - MUSCULOSKELETAL DISCOMFORT [None]
  - PULMONARY THROMBOSIS [None]
  - THROAT TIGHTNESS [None]
